FAERS Safety Report 7759141-3 (Version None)
Quarter: 2011Q3

REPORT INFORMATION
  Report Type: 
  Country: None (occurrence: None)
  Receive Date: 20110919
  Receipt Date: 20110914
  Transmission Date: 20111222
  Serious: Yes (Hospitalization)
  Sender: FDA-Public Use
  Company Number: PHEH2011US00750

PATIENT
  Sex: Male
  Weight: 141.9 kg

DRUGS (2)
  1. EXJADE [Suspect]
     Indication: ANAEMIA
  2. EXJADE [Suspect]
     Indication: HAEMOCHROMATOSIS
     Dosage: 1500 MG, DAILY
     Route: 048
     Dates: start: 20110726

REACTIONS (3)
  - THROMBOSIS [None]
  - DIARRHOEA [None]
  - ABDOMINAL PAIN UPPER [None]
